FAERS Safety Report 11792674 (Version 1)
Quarter: 2015Q4

REPORT INFORMATION
  Report Type: Spontaneous
  Country: CN (occurrence: None)
  Receive Date: 20151130
  Receipt Date: 20151130
  Transmission Date: 20160305
  Serious: Yes (Death, Other)
  Sender: FDA-Public Use
  Company Number: 2015R1-106723

PATIENT

DRUGS (3)
  1. DEXAMETHASONE (DEXAMETHASONE) UNKNOWN [Suspect]
     Active Substance: DEXAMETHASONE
     Indication: PRODUCT USED FOR UNKNOWN INDICATION
  2. RITUXIMAB (RITUXIMAB) UNKNOWN [Suspect]
     Active Substance: RITUXIMAB
     Indication: CHEMOTHERAPY
     Dosage: 600 MGX5?
  3. FLUDARABINE (FLUDARABINE) UNKNOWN [Suspect]
     Active Substance: FLUDARABINE PHOSPHATE
     Indication: CHEMOTHERAPY
     Dosage: 50 MGX5

REACTIONS (4)
  - Malignant neoplasm progression [None]
  - Aspergillus infection [None]
  - Drug effect decreased [None]
  - Chronic lymphocytic leukaemia [None]
